FAERS Safety Report 25325202 (Version 1)
Quarter: 2025Q2

REPORT INFORMATION
  Report Type: Spontaneous
  Country: CN (occurrence: CN)
  Receive Date: 20250516
  Receipt Date: 20250516
  Transmission Date: 20250716
  Serious: Yes (Other)
  Sender: NOVARTIS
  Company Number: CN-002147023-NVSC2025CN077181

PATIENT
  Age: 66 Year
  Sex: Male

DRUGS (2)
  1. TRAMETINIB [Suspect]
     Active Substance: TRAMETINIB
     Indication: Neoplasm
     Dosage: 2 MG, QD
     Route: 065
     Dates: start: 20240927, end: 20250103
  2. DABRAFENIB [Suspect]
     Active Substance: DABRAFENIB
     Indication: Neoplasm
     Dosage: 150 MG, QD
     Route: 048
     Dates: start: 20240927, end: 20250103

REACTIONS (5)
  - Pleural effusion [Unknown]
  - Pyrexia [Not Recovered/Not Resolved]
  - Cough [Unknown]
  - Productive cough [Unknown]
  - Sputum discoloured [Unknown]

NARRATIVE: CASE EVENT DATE: 20241107
